FAERS Safety Report 6465287-2 (Version None)
Quarter: 2009Q4

REPORT INFORMATION
  Report Type: 
  Country: None (occurrence: None)
  Receive Date: 20091201
  Receipt Date: 20091120
  Transmission Date: 20100525
  Serious: Yes (Death)
  Sender: FDA-Public Use
  Company Number: PH-BAXTER-2009BH018105

PATIENT
  Age: 67 Year
  Sex: Male

DRUGS (3)
  1. DIANEAL [Suspect]
     Indication: PERITONEAL DIALYSIS
     Route: 033
     Dates: start: 20070101, end: 20091013
  2. DIANEAL [Suspect]
     Route: 033
     Dates: start: 20091001, end: 20091013
  3. DIANEAL [Suspect]
     Route: 033
     Dates: start: 20091001, end: 20091013

REACTIONS (2)
  - FLUID OVERLOAD [None]
  - MYOCARDIAL INFARCTION [None]
